FAERS Safety Report 13206544 (Version 1)
Quarter: 2017Q1

REPORT INFORMATION
  Report Type: Spontaneous
  Country: US (occurrence: US)
  Receive Date: 20170209
  Receipt Date: 20170209
  Transmission Date: 20170428
  Serious: Yes (Life-Threatening, Hospitalization, Disabling, Other)
  Sender: FDA-Public Use
  Company Number: None

PATIENT
  Age: 39 Year
  Sex: Female
  Weight: 77.11 kg

DRUGS (7)
  1. ADVAIR HFA [Concomitant]
     Active Substance: FLUTICASONE PROPIONATE\SALMETEROL XINAFOATE
  2. INSULIN [Concomitant]
     Active Substance: INSULIN NOS
  3. HUMALOG [Concomitant]
     Active Substance: INSULIN LISPRO
  4. LATUDA [Suspect]
     Active Substance: LURASIDONE HYDROCHLORIDE
     Indication: BIPOLAR DISORDER
     Dosage: QUANITY - 30 DF?FREQUENCY - 1 EVENING
     Route: 048
     Dates: start: 20160314, end: 20161125
  5. LANTUS [Concomitant]
     Active Substance: INSULIN GLARGINE
  6. LYRICA [Concomitant]
     Active Substance: PREGABALIN
  7. KLONOPIN [Concomitant]
     Active Substance: CLONAZEPAM

REACTIONS (10)
  - Blood glucose increased [None]
  - Furuncle [None]
  - Unemployment [None]
  - Aphonia [None]
  - Suicidal ideation [None]
  - Gait disturbance [None]
  - Pain [None]
  - Liver disorder [None]
  - Confusional state [None]
  - Renal disorder [None]

NARRATIVE: CASE EVENT DATE: 20161125
